FAERS Safety Report 4468873-4 (Version None)
Quarter: 2004Q4

REPORT INFORMATION
  Report Type: 
  Country: None (occurrence: None)
  Receive Date: 20041008
  Receipt Date: 20040930
  Transmission Date: 20050328
  Serious: Yes (Hospitalization)
  Sender: FDA-Public Use
  Company Number: US-JNJFOC-20041000349

PATIENT
  Sex: Male
  Weight: 105.69 kg

DRUGS (11)
  1. INFLIXIMAB [Suspect]
     Indication: RHEUMATOID ARTHRITIS
     Route: 042
  2. PHENOXITILINE [Concomitant]
  3. LISINOPRIL [Concomitant]
  4. ZOCOR [Concomitant]
  5. FUROSEMIDE [Concomitant]
  6. AMITRIPTYLINE HCL [Concomitant]
  7. FOLIC ACID [Concomitant]
  8. GUAIFENSIN [Concomitant]
  9. POTASSIUM [Concomitant]
  10. METHOTREXATE [Concomitant]
  11. FISH OIL [Concomitant]

REACTIONS (4)
  - ARTERIAL DISORDER [None]
  - ARTERIAL STENOSIS [None]
  - PAIN [None]
  - PERIPHERAL ISCHAEMIA [None]
